FAERS Safety Report 5418542-9 (Version None)
Quarter: 2007Q3

REPORT INFORMATION
  Report Type: 
  Country: None (occurrence: None)
  Receive Date: 20070718
  Receipt Date: 20070405
  Transmission Date: 20080115
  Serious: Yes (Death)
  Sender: FDA-Public Use
  Company Number: 2006093882

PATIENT
  Age: 51 Year
  Sex: Male

DRUGS (3)
  1. CELEBREX [Suspect]
     Indication: ARTHRITIS
     Dosage: 100MG OR 200MG (ONCE OR TWICE)
     Dates: start: 20040101, end: 20040716
  2. CELEBREX [Suspect]
     Indication: ARTHRITIS
     Dosage: 100MG OR 200MG (ONCE OR TWICE)
     Dates: start: 20040101, end: 20040716
  3. VIOXX [Suspect]
     Dates: start: 20040101, end: 20040716

REACTIONS (1)
  - MYOCARDIAL INFARCTION [None]
